FAERS Safety Report 5481919-X (Version None)
Quarter: 2007Q4

REPORT INFORMATION
  Report Type: 
  Country: None (occurrence: None)
  Receive Date: 20071004
  Receipt Date: 20070921
  Transmission Date: 20080405
  Serious: Yes (Other)
  Sender: FDA-Public Use
  Company Number: 2007BI005690

PATIENT
  Age: 53 Year
  Sex: Female

DRUGS (2)
  1. NATALIZUMAB [Suspect]
     Indication: MULTIPLE SCLEROSIS
     Dosage: 300 MG;QM; IV
     Route: 042
     Dates: start: 20050125, end: 20050201
  2. NATALIZUMAB [Suspect]
     Indication: MULTIPLE SCLEROSIS
     Dosage: 300 MG;QM; IV
     Route: 042
     Dates: start: 20070111, end: 20070309

REACTIONS (18)
  - ASTHENIA [None]
  - CHILLS [None]
  - DIZZINESS [None]
  - EYE ROLLING [None]
  - FALL [None]
  - HEADACHE [None]
  - HEARING IMPAIRED [None]
  - HYPERHIDROSIS [None]
  - HYPOTENSION [None]
  - IMMUNE SYSTEM DISORDER [None]
  - INCOHERENT [None]
  - INFUSION RELATED REACTION [None]
  - PALLOR [None]
  - PULSE ABNORMAL [None]
  - RESPIRATION ABNORMAL [None]
  - STOMACH DISCOMFORT [None]
  - SYNCOPE [None]
  - UNRESPONSIVE TO STIMULI [None]
